FAERS Safety Report 9105643 (Version 5)
Quarter: 2014Q2

REPORT INFORMATION
  Report Type: Spontaneous
  Country: US (occurrence: US)
  Receive Date: 20130220
  Receipt Date: 20140603
  Transmission Date: 20141212
  Serious: Yes (Hospitalization, Disabling, Other)
  Sender: FDA-Public Use
  Company Number: US-009507513-1302USA008755

PATIENT
  Sex: Female
  Weight: 68.27 kg

DRUGS (17)
  1. FOSAMAX [Suspect]
     Indication: OSTEOPOROSIS
     Dosage: 70 MG, WEEKLY
     Route: 048
     Dates: start: 20020912, end: 20051113
  2. FOSAMAX [Suspect]
     Dosage: UNK, QW
     Route: 048
     Dates: end: 20051215
  3. ONE-A-DAY 50 PLUS [Concomitant]
     Dosage: UNK
     Dates: start: 1980, end: 2012
  4. MILK THISTLE [Concomitant]
     Dosage: UNK
     Dates: start: 1980, end: 2012
  5. DULCOLAX [Concomitant]
     Dosage: UNK
     Dates: start: 1980, end: 2012
  6. BLACK COHOSH [Concomitant]
     Dosage: UNK
     Dates: start: 1980, end: 2012
  7. CRANBERRY [Concomitant]
     Dosage: UNK
     Dates: start: 1980, end: 2012
  8. FIBER (UNSPECIFIED) [Concomitant]
     Dosage: UNK
     Dates: start: 1980, end: 2012
  9. VIACTIV SOFT CALCIUM CHEWS [Concomitant]
     Dosage: UNK
     Dates: start: 1980, end: 2012
  10. OMEPRAZOLE [Concomitant]
     Dosage: 20 MG, DAILY
     Dates: start: 2000
  11. CELEBREX [Concomitant]
     Dosage: 200 MG, BID
  12. CYCRIN [Concomitant]
     Dosage: 1 DF, QD
  13. FLEXERIL [Concomitant]
     Dosage: 10 MG, TID
  14. NORFLEX [Concomitant]
     Dosage: 1 DF, BID
  15. ZESTRIL [Concomitant]
     Dosage: 1 DF, QD
  16. ZOLOFT [Concomitant]
     Dosage: 100 MG, UNK
  17. PROMETRIUM [Concomitant]

REACTIONS (52)
  - Femur fracture [Not Recovered/Not Resolved]
  - Intramedullary rod insertion [Unknown]
  - Fracture delayed union [Unknown]
  - Medical device removal [Unknown]
  - Fracture delayed union [Recovered/Resolved]
  - Internal fixation of fracture [Unknown]
  - Device breakage [Recovered/Resolved]
  - Shoulder arthroplasty [Unknown]
  - Metastases to bone [Unknown]
  - Pelvic fracture [Unknown]
  - Metastatic neoplasm [Unknown]
  - Humerus fracture [Unknown]
  - Shoulder arthroplasty [Unknown]
  - Hypertension [Unknown]
  - Fall [Unknown]
  - Device failure [Unknown]
  - Upper limb fracture [Unknown]
  - Fracture nonunion [Unknown]
  - Rib fracture [Unknown]
  - Skeletal injury [Unknown]
  - Osteoarthritis [Unknown]
  - Fractured sacrum [Unknown]
  - Spinal osteoarthritis [Unknown]
  - Haemangioma of bone [Unknown]
  - Muscle atrophy [Unknown]
  - Emphysema [Unknown]
  - Foot fracture [Recovering/Resolving]
  - Foot fracture [Unknown]
  - Scapula fracture [Unknown]
  - Fall [Unknown]
  - Bursitis [Unknown]
  - Bursitis [Unknown]
  - Radiculitis lumbosacral [Unknown]
  - Gait disturbance [Unknown]
  - Cervical spine flattening [Unknown]
  - Gait disturbance [Unknown]
  - Intervertebral disc protrusion [Unknown]
  - Spinal osteoarthritis [Unknown]
  - Limb asymmetry [Unknown]
  - Cervical spinal stenosis [Unknown]
  - Limb operation [Unknown]
  - Incontinence [Unknown]
  - Insomnia [Unknown]
  - Arthritis [Unknown]
  - Cataract [Unknown]
  - Chronic obstructive pulmonary disease [Unknown]
  - Wrist surgery [Unknown]
  - Bursitis [Unknown]
  - Cervical radiculopathy [Unknown]
  - Headache [Unknown]
  - Musculoskeletal pain [Unknown]
  - Musculoskeletal pain [Unknown]
